FAERS Safety Report 16072156 (Version 1)
Quarter: 2019Q1

REPORT INFORMATION
  Report Type: Spontaneous
  Country: US (occurrence: US)
  Receive Date: 20190314
  Receipt Date: 20190314
  Transmission Date: 20190418
  Serious: No
  Sender: FDA-Public Use
  Company Number: US-SA-2019SA070129

PATIENT
  Sex: Female

DRUGS (11)
  1. EXCEDRIN EXTRA STRENGTH [Concomitant]
     Active Substance: ACETAMINOPHEN\ASPIRIN\CAFFEINE
  2. CICLOPIROX. [Concomitant]
     Active Substance: CICLOPIROX
  3. EUCRISA [Concomitant]
     Active Substance: CRISABOROLE
  4. RESTASIS [Concomitant]
     Active Substance: CYCLOSPORINE
  5. GRISEOFULVIN. [Concomitant]
     Active Substance: GRISEOFULVIN
  6. DUPIXENT [Suspect]
     Active Substance: DUPILUMAB
     Indication: DERMATITIS ATOPIC
     Dosage: 300 MG, QOW
     Route: 058
     Dates: start: 20190207
  7. ZYRTEC [Concomitant]
     Active Substance: CETIRIZINE HYDROCHLORIDE
  8. TACROLIMUS. [Concomitant]
     Active Substance: TACROLIMUS
  9. VITAMIN D [Concomitant]
     Active Substance: CHOLECALCIFEROL
  10. FLUOCINONIDE. [Concomitant]
     Active Substance: FLUOCINONIDE
  11. KETOCONAZOLE. [Concomitant]
     Active Substance: KETOCONAZOLE

REACTIONS (1)
  - Injection site discomfort [Unknown]
